FAERS Safety Report 9202295 (Version 1)
Quarter: 2013Q1

REPORT INFORMATION
  Report Type: Spontaneous
  Country: US (occurrence: None)
  Receive Date: 20130329
  Receipt Date: 20130329
  Transmission Date: 20140127
  Serious: Yes (Other)
  Sender: FDA-Public Use
  Company Number: None

PATIENT
  Age: 57 Year
  Sex: Male
  Weight: 97.52 kg

DRUGS (2)
  1. CIPROFLOXACIN [Suspect]
     Indication: INFECTION
     Dates: start: 20130319, end: 20130321
  2. CIPROFLOXACIN [Suspect]
     Indication: BIOPSY PROSTATE
     Dates: start: 20130319, end: 20130321

REACTIONS (3)
  - Myalgia [None]
  - Musculoskeletal pain [None]
  - Movement disorder [None]
